FAERS Safety Report 8828626 (Version 1)
Quarter: 2012Q4

REPORT INFORMATION
  Report Type: 
  Country: DE (occurrence: DE)
  Receive Date: 20121005
  Receipt Date: 20121005
  Transmission Date: 20130627
  Serious: Yes (Disabling)
  Sender: FDA-Public Use
  Company Number: DE-ABBOTT-12P-062-0971551-00

PATIENT
  Sex: Female

DRUGS (1)
  1. LEUPRORELIN DEPOT [Suspect]
     Indication: ENDOMETRIOSIS
     Route: 058
     Dates: start: 20080901, end: 20080928

REACTIONS (25)
  - Hormone level abnormal [Recovering/Resolving]
  - Fatigue [Recovering/Resolving]
  - Insomnia [Recovering/Resolving]
  - Disturbance in attention [Recovering/Resolving]
  - Memory impairment [Recovering/Resolving]
  - Constipation [Recovering/Resolving]
  - Headache [Recovering/Resolving]
  - Back pain [Recovering/Resolving]
  - Arthralgia [Recovering/Resolving]
  - Soft tissue disorder [Recovering/Resolving]
  - Tremor [Recovering/Resolving]
  - Paraesthesia [Recovering/Resolving]
  - Hypoaesthesia [Recovering/Resolving]
  - Dysaesthesia [Recovering/Resolving]
  - Hyperaesthesia [Recovering/Resolving]
  - Neurological symptom [Recovering/Resolving]
  - Sciatica [Recovering/Resolving]
  - Dysmenorrhoea [Recovering/Resolving]
  - Amenorrhoea [Recovering/Resolving]
  - Menorrhagia [Recovering/Resolving]
  - Hot flush [Recovering/Resolving]
  - Depressed mood [Recovering/Resolving]
  - Malaise [Recovering/Resolving]
  - Fatigue [Recovering/Resolving]
  - Sciatica [None]
